FAERS Safety Report 7862408-1 (Version None)
Quarter: 2011Q4

REPORT INFORMATION
  Report Type: 
  Country: None (occurrence: None)
  Receive Date: 20111027
  Receipt Date: 20101108
  Transmission Date: 20120403
  Serious: No
  Sender: FDA-Public Use
  Company Number: US-AMGEN-USASP2010003458

PATIENT
  Age: 30 Year
  Sex: Female

DRUGS (2)
  1. ENBREL [Suspect]
     Indication: PSORIATIC ARTHROPATHY
     Dosage: 50 MG, QWK
     Dates: start: 20080501
  2. METHOTREXATE [Concomitant]
     Dates: start: 20080101

REACTIONS (4)
  - HEPATIC STEATOSIS [None]
  - PAIN IN EXTREMITY [None]
  - FATIGUE [None]
  - OBESITY [None]
